FAERS Safety Report 5500924-8 (Version None)
Quarter: 2007Q4

REPORT INFORMATION
  Report Type: 
  Country: None (occurrence: None)
  Receive Date: 20071029
  Receipt Date: 20071018
  Transmission Date: 20080405
  Serious: Yes (Other)
  Sender: FDA-Public Use
  Company Number: PHEH2007US13812

PATIENT
  Sex: Female

DRUGS (1)
  1. RITALIN [Suspect]

REACTIONS (4)
  - DEPRESSED MOOD [None]
  - DRUG WITHDRAWAL SYNDROME [None]
  - PAIN IN EXTREMITY [None]
  - THINKING ABNORMAL [None]
